FAERS Safety Report 4380676-8 (Version None)
Quarter: 2004Q2

REPORT INFORMATION
  Report Type: 
  Country: None (occurrence: None)
  Receive Date: 20040616
  Receipt Date: 20040602
  Transmission Date: 20050107
  Serious: Yes (Hospitalization, Other)
  Sender: FDA-Public Use
  Company Number: 2004217123JP

PATIENT
  Age: 44 Year
  Sex: Female

DRUGS (3)
  1. MEDROL [Suspect]
     Indication: IMMUNOSUPPRESSION
     Dosage: 6 MG, QD, ORAL
     Route: 048
  2. AZATHIOPRINE [Suspect]
     Indication: IMMUNOSUPPRESSION
     Dosage: 50 MG, QD
  3. MIZORIBINE (MIZORIBINE) [Suspect]
     Indication: IMMUNOSUPPRESSION
     Dosage: 100 MG, QD

REACTIONS (6)
  - ASTHENIA [None]
  - BREAST CANCER [None]
  - COLON CANCER [None]
  - DIFFICULTY IN WALKING [None]
  - HAEMANGIOMA OF LIVER [None]
  - MENINGIOMA [None]
